FAERS Safety Report 5481635-4 (Version None)
Quarter: 2007Q4

REPORT INFORMATION
  Report Type: 
  Country: None (occurrence: None)
  Receive Date: 20071004
  Receipt Date: 20070928
  Transmission Date: 20080405
  Serious: Yes (Other)
  Sender: FDA-Public Use
  Company Number: 2007SP018298

PATIENT
  Sex: Female

DRUGS (1)
  1. INTRON A [Suspect]
     Indication: HEPATITIS C
     Dosage: TIW; SC
     Route: 058

REACTIONS (5)
  - BONE DISORDER [None]
  - HYSTERECTOMY [None]
  - ILL-DEFINED DISORDER [None]
  - NEOPLASM MALIGNANT [None]
  - SKIN DISORDER [None]
